FAERS Safety Report 5340659-8 (Version None)
Quarter: 2007Q2

REPORT INFORMATION
  Report Type: 
  Country: None (occurrence: None)
  Receive Date: 20070405
  Receipt Date: 20061212
  Transmission Date: 20071010
  Serious: No
  Sender: FDA-Public Use
  Company Number: US200612002108

PATIENT
  Age: 35 Year
  Sex: Male

DRUGS (3)
  1. ZYPREXA [Suspect]
     Indication: BIPOLAR DISORDER
     Dosage: 10 MG
     Dates: start: 20040101
  2. CYMBALTA [Suspect]
     Indication: DEPRESSION
     Dates: start: 20040101
  3. VITAMINS NOS (VITAMINS NOS) [Concomitant]

REACTIONS (6)
  - DEHYDRATION [None]
  - DIZZINESS [None]
  - HEADACHE [None]
  - INFLUENZA LIKE ILLNESS [None]
  - STOMACH DISCOMFORT [None]
  - TEMPERATURE REGULATION DISORDER [None]
